FAERS Safety Report 23141574 (Version 1)
Quarter: 2023Q4

REPORT INFORMATION
  Report Type: Spontaneous
  Country: US (occurrence: US)
  Receive Date: 20231103
  Receipt Date: 20231103
  Transmission Date: 20240109
  Serious: Yes (Hospitalization, Other)
  Sender: FDA-Public Use
  Company Number: US-MSNLABS-2023MSNLIT01884

PATIENT

DRUGS (27)
  1. ATORVASTATIN [Suspect]
     Active Substance: ATORVASTATIN
     Indication: Middle cerebral artery stroke
     Route: 065
  2. ATORVASTATIN [Suspect]
     Active Substance: ATORVASTATIN
     Indication: Neuropathy peripheral
  3. ATORVASTATIN [Suspect]
     Active Substance: ATORVASTATIN
     Indication: Major depression
  4. METOPROLOL [Suspect]
     Active Substance: METOPROLOL
     Indication: Major depression
     Route: 065
  5. METOPROLOL [Suspect]
     Active Substance: METOPROLOL
     Indication: Middle cerebral artery stroke
  6. METOPROLOL [Suspect]
     Active Substance: METOPROLOL
     Indication: Neuropathy peripheral
  7. ASPIRIN [Suspect]
     Active Substance: ASPIRIN
     Indication: Major depression
     Route: 065
  8. ASPIRIN [Suspect]
     Active Substance: ASPIRIN
     Indication: Neuropathy peripheral
  9. ASPIRIN [Suspect]
     Active Substance: ASPIRIN
     Indication: Middle cerebral artery stroke
  10. GABAPENTIN [Suspect]
     Active Substance: GABAPENTIN
     Indication: Middle cerebral artery stroke
     Route: 065
  11. GABAPENTIN [Suspect]
     Active Substance: GABAPENTIN
     Indication: Neuropathy peripheral
  12. GABAPENTIN [Suspect]
     Active Substance: GABAPENTIN
     Indication: Major depression
  13. DULOXETINE [Suspect]
     Active Substance: DULOXETINE
     Indication: Major depression
     Route: 065
  14. DULOXETINE [Suspect]
     Active Substance: DULOXETINE
     Indication: Neuropathy peripheral
  15. DULOXETINE [Suspect]
     Active Substance: DULOXETINE
     Indication: Middle cerebral artery stroke
  16. ACETAMINOPHEN [Suspect]
     Active Substance: ACETAMINOPHEN
     Indication: Middle cerebral artery stroke
     Route: 065
  17. ACETAMINOPHEN [Suspect]
     Active Substance: ACETAMINOPHEN
     Indication: Neuropathy peripheral
  18. ACETAMINOPHEN [Suspect]
     Active Substance: ACETAMINOPHEN
     Indication: Major depression
  19. NALTREXONE [Suspect]
     Active Substance: NALTREXONE
     Indication: Alcohol use disorder
     Route: 065
  20. ACAMPROSATE [Suspect]
     Active Substance: ACAMPROSATE
     Indication: Alcohol use disorder
     Route: 048
  21. LORAZEPAM [Suspect]
     Active Substance: LORAZEPAM
     Indication: Anxiety
     Route: 042
  22. LORAZEPAM [Suspect]
     Active Substance: LORAZEPAM
     Indication: Major depression
  23. LORAZEPAM [Suspect]
     Active Substance: LORAZEPAM
     Indication: Neuropathy peripheral
  24. CHLORDIAZEPOXIDE [Suspect]
     Active Substance: CHLORDIAZEPOXIDE
     Indication: Anxiety
     Route: 048
  25. CHLORDIAZEPOXIDE [Suspect]
     Active Substance: CHLORDIAZEPOXIDE
     Indication: Neuropathy peripheral
  26. CHLORDIAZEPOXIDE [Suspect]
     Active Substance: CHLORDIAZEPOXIDE
     Indication: Major depression
  27. INSULIN NOS [Concomitant]
     Active Substance: INSULIN NOS
     Route: 065

REACTIONS (1)
  - Delirium [Unknown]
